FAERS Safety Report 4978336-5 (Version None)
Quarter: 2006Q2

REPORT INFORMATION
  Report Type: 
  Country: None (occurrence: None)
  Receive Date: 20060417
  Receipt Date: 20060407
  Transmission Date: 20061013
  Serious: Yes (Hospitalization, Other)
  Sender: FDA-Public Use
  Company Number: DEWYE540007APR06

PATIENT
  Age: 31 Year
  Sex: Female

DRUGS (4)
  1. RAPAMUNE [Suspect]
     Indication: PROPHYLAXIS AGAINST TRANSPLANT REJECTION
     Dates: start: 20060214
  2. BISOPROLOL FUMARATE [Concomitant]
  3. ENALAPRIL MALEATE [Concomitant]
  4. ARANESP [Concomitant]

REACTIONS (1)
  - TRANSPLANT REJECTION [None]
